FAERS Safety Report 9979504 (Version 2)
Quarter: 2014Q1

REPORT INFORMATION
  Report Type: Report from Study
  Country: US (occurrence: US)
  Receive Date: 20140306
  Receipt Date: 20140306
  Transmission Date: 20141002
  Serious: No
  Sender: FDA-Public Use
  Company Number: US-ABBVIE-13P-163-1162993-00

PATIENT
  Age: 57 Year
  Sex: Male

DRUGS (6)
  1. HUMIRA [Suspect]
     Indication: COLITIS ULCERATIVE
     Dosage: DAY 1
     Dates: start: 20130912, end: 20130912
  2. HUMIRA [Suspect]
     Dosage: DAY 15
     Dates: start: 20130926, end: 20130926
  3. HUMIRA [Suspect]
     Dates: start: 20131010, end: 20131010
  4. HUMIRA [Suspect]
     Dates: start: 20131024, end: 20131024
  5. HUMIRA [Suspect]
     Dates: start: 20131114
  6. UNKNOWN MEDICATIONS [Concomitant]
     Indication: PRODUCT USED FOR UNKNOWN INDICATION

REACTIONS (2)
  - Inappropriate schedule of drug administration [Recovered/Resolved]
  - Incorrect dose administered [Recovered/Resolved]
